FAERS Safety Report 9286914 (Version 1)
Quarter: 2013Q2

REPORT INFORMATION
  Report Type: Spontaneous
  Country: MY (occurrence: None)
  Receive Date: 20130508
  Receipt Date: 20130508
  Transmission Date: 20140414
  Serious: Yes (Other)
  Sender: FDA-Public Use
  Company Number: 2013000105

PATIENT
  Age: 47 Year
  Sex: Male

DRUGS (3)
  1. ACEON [Suspect]
     Indication: HYPERTENSION
     Route: 048
     Dates: start: 2013
  2. HYDROCHLOROTHIAZIDE (HYDROCHLOROTHIAZIDE) [Concomitant]
  3. AMLODIPINE (AMLODIPINE) [Concomitant]

REACTIONS (1)
  - Stevens-Johnson syndrome [None]
